FAERS Safety Report 6076306-X (Version None)
Quarter: 2009Q1

REPORT INFORMATION
  Report Type: 
  Country: None (occurrence: None)
  Receive Date: 20090209
  Receipt Date: 20090130
  Transmission Date: 20090719
  Serious: Yes (Hospitalization)
  Sender: FDA-Public Use
  Company Number: 2008SP008566

PATIENT
  Age: 57 Year
  Sex: Female
  Weight: 66.7 kg

DRUGS (15)
  1. TEMODAR [Suspect]
     Indication: HEPATIC NEOPLASM MALIGNANT
     Dosage: 200 MG/M2;QD;PO, 150 MG/M2;QD;PO
     Route: 048
     Dates: start: 20080402, end: 20080406
  2. TEMODAR [Suspect]
     Indication: HEPATIC NEOPLASM MALIGNANT
     Dosage: 200 MG/M2;QD;PO, 150 MG/M2;QD;PO
     Route: 048
     Dates: start: 20080513, end: 20080515
  3. ABT-888 (INVESTIGATIONAL DRUG) [Suspect]
     Indication: HEPATIC NEOPLASM MALIGNANT
     Dosage: 80 MG;BID;PO, 40 MG;BID;PO
     Route: 048
     Dates: start: 20080402, end: 20080408
  4. ABT-888 (INVESTIGATIONAL DRUG) [Suspect]
     Indication: HEPATIC NEOPLASM MALIGNANT
     Dosage: 80 MG;BID;PO, 40 MG;BID;PO
     Route: 048
     Dates: start: 20080513, end: 20080515
  5. SORAFENIB [Concomitant]
  6. LANSOPRAZOLE [Concomitant]
  7. ACETYLSALICYLIC ACID SRT [Concomitant]
  8. ONDANSETRON [Concomitant]
  9. METOCLOPRAMIDE [Concomitant]
  10. DIPHENHYDRAMINE HYDROCHLORIDE [Concomitant]
  11. OMEPRAZOLE [Concomitant]
  12. TYLENOL (CAPLET) [Concomitant]
  13. IMODIUM [Concomitant]
  14. HYDROCODONE BITARTRATE [Concomitant]
  15. DIPHENHYDRAMINE HCL [Concomitant]

REACTIONS (18)
  - ABDOMINAL TENDERNESS [None]
  - BLISTER [None]
  - DEHYDRATION [None]
  - EPISTAXIS [None]
  - GASTROINTESTINAL HAEMORRHAGE [None]
  - HAEMOGLOBIN DECREASED [None]
  - HEADACHE [None]
  - INCREASED TENDENCY TO BRUISE [None]
  - LEUKOPENIA [None]
  - LIVER PALPABLE SUBCOSTAL [None]
  - MOUTH HAEMORRHAGE [None]
  - NAUSEA [None]
  - NEUTROPENIA [None]
  - PETECHIAE [None]
  - PULMONARY EMBOLISM [None]
  - PYREXIA [None]
  - THROMBOCYTOPENIA [None]
  - VOMITING [None]
